FAERS Safety Report 8508567 (Version 3)
Quarter: 2013Q1

REPORT INFORMATION
  Report Type: Spontaneous
  Country: US (occurrence: US)
  Receive Date: 20120412
  Receipt Date: 20130116
  Transmission Date: 20140127
  Serious: No
  Sender: FDA-Public Use
  Company Number: US-ASTRAZENECA-2011SE51331

PATIENT
  Sex: Female

DRUGS (3)
  1. NEXIUM [Suspect]
     Route: 048
     Dates: start: 200605, end: 200710
  2. NEXIUM [Suspect]
     Route: 048
     Dates: start: 20060628
  3. AMOX TR K CLV [Concomitant]
     Dosage: 875-125 MG 1 TABLET  TWICE DAILY FOR 10 DAYS
     Dates: start: 20070220

REACTIONS (4)
  - Osteoporosis [Unknown]
  - Osteopenia [Unknown]
  - Foot fracture [Unknown]
  - Skeletal injury [Unknown]
